FAERS Safety Report 9697327 (Version 2)
Quarter: 2013Q4

REPORT INFORMATION
  Report Type: Spontaneous
  Country: US (occurrence: US)
  Receive Date: 20131120
  Receipt Date: 20131203
  Transmission Date: 20140711
  Serious: Yes (Death, Hospitalization, Other)
  Sender: FDA-Public Use
  Company Number: US-AMGEN-USASP2013080071

PATIENT
  Age: 91 Year
  Sex: Female
  Weight: 49.89 kg

DRUGS (19)
  1. PROLIA [Suspect]
     Indication: OSTEOPOROSIS POSTMENOPAUSAL
     Dosage: 60 MG, Q6MO
     Route: 058
     Dates: start: 20130924, end: 20130924
  2. XARELTO [Concomitant]
     Indication: ATRIAL FIBRILLATION
     Dosage: 20 MG, QD
     Route: 065
  3. CALCIUM [Concomitant]
     Dosage: 1200 MG, QD
     Route: 065
  4. VITAMIN D                          /00107901/ [Concomitant]
     Dosage: 2000 UNIT, QD
     Route: 065
  5. DIGOXIN [Concomitant]
     Indication: PROPHYLAXIS
     Dosage: 0.125 MG, UNK
  6. AMBIEN [Concomitant]
     Indication: INSOMNIA
     Dosage: 5 MG, QD
     Route: 048
  7. REGLAN                             /00041901/ [Concomitant]
     Indication: IMPAIRED GASTRIC EMPTYING
     Dosage: 5 MG, TID
     Route: 048
  8. METOPROLOL TARTRATE AND HYDROCHLOROTHIAZIDE [Concomitant]
     Indication: PROPHYLAXIS
     Dosage: 25 MG, BID
     Route: 065
  9. ONGLYZA [Concomitant]
     Dosage: 2.5 MG, QD
     Route: 048
  10. FUROSEMIDE [Concomitant]
     Dosage: 20 MG, AS NECESSARY
     Route: 048
  11. UREA [Concomitant]
     Dosage: UNK UNK, AS NECESSARY
     Route: 065
  12. EDLUAR [Concomitant]
     Dosage: 5 MG, AS NECESSARY
     Route: 060
  13. SANCTURA [Concomitant]
     Dosage: 60 MG, QD
     Route: 048
  14. GELNIQUE [Concomitant]
     Dosage: UNK UNK, TID
     Route: 065
  15. ZOCOR [Concomitant]
     Dosage: 10 MG, QD
     Route: 048
  16. COUMADIN                           /00014802/ [Concomitant]
     Dosage: 3 MG, QD
     Route: 065
  17. PROTONIX [Concomitant]
     Dosage: 40 MG, QD
     Route: 065
  18. NASONEX [Concomitant]
     Dosage: 50 MUG, QD
     Route: 045
  19. PATANASE [Concomitant]
     Indication: NASAL CONGESTION
     Dosage: UNK UNK, AS NECESSARY
     Route: 045

REACTIONS (35)
  - Urinary tract infection [Unknown]
  - Respiratory arrest [Unknown]
  - Renal cell carcinoma [Unknown]
  - Acute respiratory failure [Unknown]
  - Pulseless electrical activity [Unknown]
  - Renal failure acute [Unknown]
  - Hypercalcaemia [Unknown]
  - Lactic acidosis [Unknown]
  - Malaise [Unknown]
  - Mental disorder [Unknown]
  - Cardiac arrest [Unknown]
  - Splenomegaly [Unknown]
  - Chronic obstructive pulmonary disease [Unknown]
  - Pleural effusion [Unknown]
  - Hallucination [Unknown]
  - Lymphoma [Fatal]
  - Hypotension [Unknown]
  - Abdominal distension [Unknown]
  - Hypokalaemia [Unknown]
  - Asthenia [Unknown]
  - Fatigue [Unknown]
  - Somnolence [Unknown]
  - Scratch [Unknown]
  - Cough [Unknown]
  - Pyrexia [Unknown]
  - Chills [Unknown]
  - Sputum abnormal [Unknown]
  - Constipation [Unknown]
  - Pruritus [Unknown]
  - Hearing impaired [Unknown]
  - Lethargy [Unknown]
  - Incisional hernia [Unknown]
  - White blood cell count increased [Unknown]
  - Lip dry [Unknown]
  - Mucosal dryness [Unknown]
